FAERS Safety Report 5297525-6 (Version None)
Quarter: 2007Q2

REPORT INFORMATION
  Report Type: 
  Country: None (occurrence: None)
  Receive Date: 20070416
  Receipt Date: 20070405
  Transmission Date: 20071010
  Serious: Yes (Hospitalization)
  Sender: FDA-Public Use
  Company Number: JP-JNJFOC-20061206197

PATIENT
  Sex: Female

DRUGS (10)
  1. MICONAZOLE [Suspect]
     Route: 048
  2. MICONAZOLE [Suspect]
     Route: 048
  3. MICONAZOLE [Suspect]
     Indication: ORAL CANDIDIASIS
     Route: 048
  4. SIMVASTATIN [Interacting]
     Indication: HYPERLIPIDAEMIA
     Route: 048
     Dates: start: 20061204, end: 20061210
  5. ASPIRIN [Concomitant]
     Indication: HYPERLIPIDAEMIA
     Route: 048
  6. DILTIAZEM HYDROCHLORIDE [Concomitant]
     Indication: MYOCARDIAL INFARCTION
     Route: 048
  7. DOXAZOSIN MESYLATE [Concomitant]
     Indication: HYPERTENSION
     Route: 048
  8. VALSARTAN [Concomitant]
     Indication: HYPERTENSION
     Route: 048
  9. PILSICAINIDE HYDROCHLORIDE [Concomitant]
     Indication: ARRHYTHMIA
     Route: 048
  10. ISOSORBIDE MONONITRATE [Concomitant]
     Indication: MYOCARDIAL INFARCTION
     Route: 048

REACTIONS (4)
  - BLOOD CREATINE PHOSPHOKINASE INCREASED [None]
  - DRUG INTERACTION [None]
  - LIVER FUNCTION TEST ABNORMAL [None]
  - RHABDOMYOLYSIS [None]
